FAERS Safety Report 24957737 (Version 1)
Quarter: 2025Q1

REPORT INFORMATION
  Report Type: Spontaneous
  Country: JP (occurrence: JP)
  Receive Date: 20250212
  Receipt Date: 20250212
  Transmission Date: 20250409
  Serious: Yes (Other)
  Sender: LEADING PHARMA
  Company Number: JP-LEADINGPHARMA-JP-2025LEALIT00025

PATIENT
  Sex: Male

DRUGS (5)
  1. MEXILETINE HYDROCHLORIDE [Suspect]
     Active Substance: MEXILETINE HYDROCHLORIDE
     Indication: Torsade de pointes
     Route: 065
  2. MIDAZOLAM [Concomitant]
     Active Substance: MIDAZOLAM
     Route: 065
  3. NADOLOL [Concomitant]
     Active Substance: NADOLOL
     Route: 065
  4. DEXMEDETOMIDINE [Concomitant]
     Active Substance: DEXMEDETOMIDINE
     Route: 065
  5. VERAPAMIL [Concomitant]
     Active Substance: VERAPAMIL HYDROCHLORIDE
     Route: 065

REACTIONS (2)
  - Ventricular arrhythmia [Recovered/Resolved]
  - Drug ineffective for unapproved indication [Unknown]
